FAERS Safety Report 12462223 (Version 1)
Quarter: 2016Q2

REPORT INFORMATION
  Report Type: Spontaneous
  Country: US (occurrence: NL)
  Receive Date: 20160613
  Receipt Date: 20160613
  Transmission Date: 20160815
  Serious: Yes (Other)
  Sender: FDA-Public Use
  Company Number: US-APOTEX-2016AP008959

PATIENT
  Age: 33 Year
  Sex: Female

DRUGS (8)
  1. VENLAFAXINE APOTEX XR [Suspect]
     Active Substance: VENLAFAXINE HYDROCHLORIDE
     Indication: ANXIETY
     Dosage: 150 MG, PER DAY
     Route: 065
  2. VENLAFAXINE APOTEX XR [Suspect]
     Active Substance: VENLAFAXINE HYDROCHLORIDE
     Indication: DEPRESSION
     Dosage: 75 MG, PER DAY
     Route: 065
  3. VENLAFAXINE APOTEX XR [Suspect]
     Active Substance: VENLAFAXINE HYDROCHLORIDE
     Dosage: 75 MG, PER DAY
     Route: 005
  4. TEMAZEPAM. [Suspect]
     Active Substance: TEMAZEPAM
     Indication: ANXIETY
     Dosage: UNK, UNKNOWN
     Route: 065
  5. SERTRALINE APOTEX [Suspect]
     Active Substance: SERTRALINE HYDROCHLORIDE
     Indication: ANXIETY
     Dosage: UNK UNK, UNKNOWN
     Route: 065
  6. SERTRALINE APOTEX [Suspect]
     Active Substance: SERTRALINE HYDROCHLORIDE
     Indication: DEPRESSION
  7. TEMAZEPAM. [Suspect]
     Active Substance: TEMAZEPAM
     Indication: DEPRESSION
  8. QUETIAPINE APOTEX [Suspect]
     Active Substance: QUETIAPINE
     Indication: INSOMNIA
     Dosage: UNK, UNKNOWN
     Route: 065

REACTIONS (17)
  - Enzyme inhibition [Not Recovered/Not Resolved]
  - Abnormal behaviour [Unknown]
  - Mood swings [Unknown]
  - Panic attack [Unknown]
  - Homicide [Not Recovered/Not Resolved]
  - Depressed mood [Unknown]
  - Physical assault [Not Recovered/Not Resolved]
  - Toxicity to various agents [Not Recovered/Not Resolved]
  - Fatigue [Unknown]
  - Prescribed overdose [Unknown]
  - Akathisia [Not Recovered/Not Resolved]
  - Drug interaction [Not Recovered/Not Resolved]
  - Drug ineffective [Unknown]
  - Amnesia [Unknown]
  - Thinking abnormal [Unknown]
  - Suicide attempt [Not Recovered/Not Resolved]
  - Drug withdrawal syndrome [Not Recovered/Not Resolved]
